FAERS Safety Report 5869942-4 (Version None)
Quarter: 2008Q3

REPORT INFORMATION
  Report Type: 
  Country: None (occurrence: None)
  Receive Date: 20080904
  Receipt Date: 20080827
  Transmission Date: 20090109
  Serious: Yes (Other)
  Sender: FDA-Public Use
  Company Number: AU-PFIZER INC-2008072119

PATIENT
  Sex: Male

DRUGS (4)
  1. LIPITOR [Suspect]
  2. DRUG, UNSPECIFIED [Concomitant]
  3. WARFARIN SODIUM [Concomitant]
  4. INSULIN [Concomitant]

REACTIONS (1)
  - GASTRIC CANCER [None]
